FAERS Safety Report 18943921 (Version 1)
Quarter: 2021Q1

REPORT INFORMATION
  Report Type: Other
  Country: US (occurrence: US)
  Receive Date: 20210226
  Receipt Date: 20210226
  Transmission Date: 20210420
  Serious: Yes (Hospitalization)
  Sender: FDA-Public Use
  Company Number: US-AJANTA PHARMA USA INC.-2107354

PATIENT
  Age: 61 Year
  Sex: Female

DRUGS (1)
  1. CLONIDINE (ANDA 209686) [Suspect]
     Active Substance: CLONIDINE
     Indication: HYPERTENSION
     Route: 048

REACTIONS (1)
  - Cerebral ischaemia [Recovering/Resolving]
